FAERS Safety Report 13588598 (Version 2)
Quarter: 2017Q2

REPORT INFORMATION
  Report Type: Spontaneous
  Country: DE (occurrence: DE)
  Receive Date: 20170529
  Receipt Date: 20170530
  Transmission Date: 20170830
  Serious: Yes (Life-Threatening, Hospitalization, Other)
  Sender: FDA-Public Use
  Company Number: DE-SUN PHARMACEUTICAL INDUSTRIES LTD-2015R1-107924

PATIENT
  Age: 29 Year
  Sex: Female

DRUGS (1)
  1. QUETIAPINE. [Suspect]
     Active Substance: QUETIAPINE
     Indication: PRODUCT USED FOR UNKNOWN INDICATION
     Dosage: UNK
     Route: 048

REACTIONS (8)
  - Toxicity to various agents [Recovered/Resolved]
  - Blood pressure decreased [Recovered/Resolved]
  - Tachycardia [Recovered/Resolved]
  - Exposure during pregnancy [Recovered/Resolved]
  - Suicide attempt [Unknown]
  - Live birth [Unknown]
  - Antipsychotic drug level increased [Unknown]
  - Seizure [Recovered/Resolved]
